FAERS Safety Report 4928561-4 (Version None)
Quarter: 2006Q1

REPORT INFORMATION
  Report Type: 
  Country: None (occurrence: None)
  Receive Date: 20060223
  Receipt Date: 20060217
  Transmission Date: 20060701
  Serious: Yes (Death)
  Sender: FDA-Public Use
  Company Number: 2006-02-0185

PATIENT
  Age: 94 Year
  Sex: Female

DRUGS (2)
  1. IMDUR [Suspect]
     Dosage: ORAL
     Route: 048
  2. K-DUR 10 [Suspect]
     Dosage: ORAL
     Route: 048

REACTIONS (2)
  - ANGINA PECTORIS [None]
  - PNEUMONIA [None]
